FAERS Safety Report 10985361 (Version 1)
Quarter: 2015Q2

REPORT INFORMATION
  Report Type: Spontaneous
  Country: US (occurrence: None)
  Receive Date: 20150403
  Receipt Date: 20150403
  Transmission Date: 20150821
  Serious: Yes (Other)
  Sender: FDA-Public Use
  Company Number: None

PATIENT
  Age: 46 Year
  Sex: Male
  Weight: 133.36 kg

DRUGS (1)
  1. TESTOSTERONE CYPIONATE 200 MG/ML WATSON [Suspect]
     Active Substance: TESTOSTERONE CYPIONATE
     Indication: HYPOGONADISM
     Dosage: 1 ML Q2WK
     Route: 030
     Dates: start: 20150202

REACTIONS (1)
  - Pulmonary embolism [None]

NARRATIVE: CASE EVENT DATE: 20150401
